FAERS Safety Report 25737478 (Version 1)
Quarter: 2025Q3

REPORT INFORMATION
  Report Type: Spontaneous
  Country: US (occurrence: US)
  Receive Date: 20250828
  Receipt Date: 20250828
  Transmission Date: 20251021
  Serious: No
  Sender: TEIKOKU
  Company Number: US-TPU-TPU-2025-00381

PATIENT
  Age: 87 Year
  Sex: Female

DRUGS (1)
  1. LIDOCAINE PATCH [Suspect]
     Active Substance: LIDOCAINE

REACTIONS (2)
  - Drug ineffective for unapproved indication [Unknown]
  - Pain [Unknown]

NARRATIVE: CASE EVENT DATE: 20250731
